FAERS Safety Report 25648009 (Version 1)
Quarter: 2025Q3

REPORT INFORMATION
  Report Type: Spontaneous
  Country: US (occurrence: US)
  Receive Date: 20250806
  Receipt Date: 20250806
  Transmission Date: 20251021
  Serious: No
  Sender: STRIDES
  Company Number: US-STRIDES ARCOLAB LIMITED-2025SP005179

PATIENT
  Age: 45 Year
  Sex: Female

DRUGS (2)
  1. LISINOPRIL [Suspect]
     Active Substance: LISINOPRIL
     Indication: Essential hypertension
     Route: 065
  2. DILTIAZEM [Suspect]
     Active Substance: DILTIAZEM
     Indication: Essential hypertension
     Route: 065

REACTIONS (2)
  - Gastrooesophageal reflux disease [Recovered/Resolved]
  - Off label use [Unknown]
